FAERS Safety Report 21450622 (Version 1)
Quarter: 2022Q4

REPORT INFORMATION
  Report Type: Spontaneous
  Country: TH (occurrence: TH)
  Receive Date: 20221013
  Receipt Date: 20221013
  Transmission Date: 20230113
  Serious: Yes (Death, Life-Threatening, Other)
  Sender: FDA-Public Use
  Company Number: TH-PFIZER INC-PV202200075212

PATIENT
  Age: 67 Month
  Sex: Male

DRUGS (2)
  1. METHYLPREDNISOLONE SODIUM SUCCINATE [Suspect]
     Active Substance: METHYLPREDNISOLONE SODIUM SUCCINATE
     Indication: Multisystem inflammatory syndrome
     Dosage: HIGH DOSE
     Route: 042
  2. HUMAN IMMUNOGLOBULIN G [Suspect]
     Active Substance: HUMAN IMMUNOGLOBULIN G
     Indication: Multisystem inflammatory syndrome
     Dosage: UNK
     Route: 042

REACTIONS (5)
  - Shock [Fatal]
  - Hypertrophic cardiomyopathy [Fatal]
  - Disseminated aspergillosis [Fatal]
  - Cytomegalovirus infection reactivation [Fatal]
  - Drug ineffective [Fatal]
